FAERS Safety Report 6035402-3 (Version None)
Quarter: 2009Q1

REPORT INFORMATION
  Report Type: 
  Country: None (occurrence: None)
  Receive Date: 20090113
  Receipt Date: 20090106
  Transmission Date: 20090719
  Serious: Yes (Other)
  Sender: FDA-Public Use
  Company Number: US-JNJFOC-20090101314

PATIENT
  Sex: Female
  Weight: 61.24 kg

DRUGS (13)
  1. CYCLOBENZAPRINE HCL [Suspect]
     Indication: MUSCLE SPASMS
     Dosage: AS NEEDED
     Route: 048
  2. HUMIRA [Interacting]
     Indication: ANKYLOSING SPONDYLITIS
     Dosage: 40MG/0.8ML
  3. VICODIN [Interacting]
     Indication: PAIN
     Dosage: 5/500, 3 TIMES DAILY, AS NEEDED
  4. LEXAPRO [Interacting]
     Indication: DEPRESSION
     Route: 048
  5. CHLORMEZANONE [Interacting]
     Indication: DRUG USE FOR UNKNOWN INDICATION
     Route: 048
  6. AMITRIPTYLINE HCL [Interacting]
     Indication: MIGRAINE
     Route: 048
  7. RIZATRIPTAN BENZOATE [Interacting]
     Indication: HEADACHE
     Route: 048
  8. PREGABALIN [Interacting]
     Indication: DRUG USE FOR UNKNOWN INDICATION
     Route: 048
  9. CELECOXIB [Interacting]
     Indication: ANKYLOSING SPONDYLITIS
     Route: 048
  10. BUPROPION HCL [Interacting]
     Indication: DEPRESSION
     Route: 048
  11. MINOCYCLINE HCL [Interacting]
     Indication: ACNE
     Route: 048
  12. CLINDAMYCIN HCL [Interacting]
     Indication: LOCALISED INFECTION
     Route: 048
  13. TETANUS [Interacting]
     Indication: PROPHYLAXIS
     Route: 030

REACTIONS (5)
  - ASTHENIA [None]
  - DRUG INTERACTION [None]
  - LOSS OF CONSCIOUSNESS [None]
  - PAIN IN EXTREMITY [None]
  - TREMOR [None]
